FAERS Safety Report 7559827-X (Version None)
Quarter: 2011Q2

REPORT INFORMATION
  Report Type: 
  Country: None (occurrence: None)
  Receive Date: 20110617
  Receipt Date: 20110617
  Transmission Date: 20111010
  Serious: Yes (Other)
  Sender: FDA-Public Use
  Company Number: None

PATIENT
  Sex: Female

DRUGS (3)
  1. CLINDAMYCIN [Suspect]
     Dosage: 2 CAPSULE EVERY 6HRS X1WK PO
     Route: 048
     Dates: start: 20110401, end: 20110408
  2. CLINDAMYCIN [Suspect]
     Indication: ENDODONTIC PROCEDURE
     Dosage: 1 CAPSULE EVERY 6 HOURS X1WK PO
     Route: 048
     Dates: start: 20110325, end: 20110401
  3. CLINDAMYCIN [Suspect]
     Indication: INFECTION PROPHYLAXIS
     Dosage: 1 CAPSULE EVERY 6 HOURS X1WK PO
     Route: 048
     Dates: start: 20110325, end: 20110401

REACTIONS (4)
  - CHROMATURIA [None]
  - PRURITUS [None]
  - RASH [None]
  - ARTHRALGIA [None]
